FAERS Safety Report 12583957 (Version 3)
Quarter: 2016Q3

REPORT INFORMATION
  Report Type: Spontaneous
  Country: AR (occurrence: AR)
  Receive Date: 20160722
  Receipt Date: 20160829
  Transmission Date: 20161109
  Serious: Yes (Hospitalization, Disabling)
  Sender: FDA-Public Use
  Company Number: PHHY2016AR100149

PATIENT
  Age: 80 Year
  Sex: Female

DRUGS (2)
  1. FEMARA [Suspect]
     Active Substance: LETROZOLE
     Indication: BREAST CANCER RECURRENT
     Route: 065
     Dates: start: 200709
  2. SINTROM [Suspect]
     Active Substance: ACENOCOUMAROL
     Indication: COAGULOPATHY
     Dosage: 0.5 DF ON MONDAYS AND 0.25 DF THE REST OF THE DAYS
     Route: 065
     Dates: start: 200709

REACTIONS (5)
  - Osteoarthritis [Unknown]
  - Drug ineffective [Unknown]
  - Arthritis infective [Unknown]
  - Nosocomial infection [Unknown]
  - Motor dysfunction [Unknown]

NARRATIVE: CASE EVENT DATE: 2007
